FAERS Safety Report 5209769-X (Version None)
Quarter: 2006Q4

REPORT INFORMATION
  Report Type: 
  Country: None (occurrence: None)
  Receive Date: 20061129
  Receipt Date: 20040401
  Transmission Date: 20070319
  Serious: Yes (Death, Hospitalization)
  Sender: FDA-Public Use
  Company Number: 2004UW06543

PATIENT
  Sex: Female

DRUGS (2)
  1. ZESTRIL [Suspect]
     Indication: CARDIAC FAILURE
     Dosage: WITHHELD FOR 5 DAYS IN THE HOSPITAL
  2. ZESTRIL [Suspect]
     Indication: CARDIAC FAILURE

REACTIONS (2)
  - CEREBROVASCULAR ACCIDENT [None]
  - HYPOTENSION [None]
